FAERS Safety Report 9104030 (Version 2)
Quarter: 2013Q1

REPORT INFORMATION
  Report Type: Spontaneous
  Country: US (occurrence: US)
  Receive Date: 20130219
  Receipt Date: 20130311
  Transmission Date: 20140127
  Serious: Yes (Other)
  Sender: FDA-Public Use
  Company Number: PHHY2013US014629

PATIENT
  Age: 78 Year
  Sex: Female
  Weight: 72.56 kg

DRUGS (8)
  1. GENTEAL [Suspect]
     Indication: DRY EYE
     Dosage: 1 DRP, PRN
     Dates: start: 20121224, end: 20121224
  2. CELLULASE [Concomitant]
     Indication: DRY EYE
     Dosage: 1 DRP, PRN
  3. RINGER [Concomitant]
     Indication: DRY EYE
     Dosage: 1 DRP, PRN
  4. VERAPAMIL [Concomitant]
     Dosage: 360 MG, DAILY
  5. COREG [Concomitant]
     Dosage: 6.25 MG, BID
  6. HYDROCHLOORTHIAZIDE [Concomitant]
     Dosage: 12.5 MG, DAILY
  7. ENALAPRIL [Concomitant]
     Dosage: 20 MG, DAILY
  8. NAPROXEN SODIUM [Concomitant]
     Dosage: 500 MG, BID

REACTIONS (3)
  - Keratitis [Recovered/Resolved]
  - Blood pressure systolic increased [Unknown]
  - Drug ineffective [Unknown]
